FAERS Safety Report 9218101 (Version 1)
Quarter: 2013Q2

REPORT INFORMATION
  Report Type: Spontaneous
  Country: DZ (occurrence: DZ)
  Receive Date: 20130408
  Receipt Date: 20130408
  Transmission Date: 20140414
  Serious: Yes (Hospitalization)
  Sender: FDA-Public Use
  Company Number: DZ-GLAXOSMITHKLINE-B0880864A

PATIENT
  Age: 6 Year
  Sex: Female

DRUGS (1)
  1. ZINNAT [Suspect]
     Indication: TONSILLITIS
     Dosage: 125MG SEE DOSAGE TEXT
     Route: 065
     Dates: start: 20130326, end: 20130327

REACTIONS (2)
  - Angioedema [Unknown]
  - Overdose [Unknown]
